FAERS Safety Report 10390955 (Version 2)
Quarter: 2014Q3

REPORT INFORMATION
  Report Type: Report from Study
  Country: GB (occurrence: GB)
  Receive Date: 20140818
  Receipt Date: 20140818
  Transmission Date: 20150326
  Serious: Yes (Other)
  Sender: FDA-Public Use
  Company Number: GB-BRISTOL-MYERS SQUIBB COMPANY-19955616

PATIENT
  Age: 15 Day
  Sex: Male
  Weight: 3.9 kg

DRUGS (1)
  1. SPRYCEL [Suspect]
     Active Substance: DASATINIB
     Route: 064
     Dates: start: 20100322

REACTIONS (2)
  - Talipes [Unknown]
  - Exposure via father [Recovered/Resolved]
